FAERS Safety Report 19970052 (Version 3)
Quarter: 2025Q2

REPORT INFORMATION
  Report Type: Spontaneous
  Country: PL (occurrence: PL)
  Receive Date: 20211019
  Receipt Date: 20250422
  Transmission Date: 20250717
  Serious: Yes (Other)
  Sender: MYLAN
  Company Number: PL-002147023-NVSC2021PL142238

PATIENT
  Age: 49 Year
  Sex: Male

DRUGS (18)
  1. TACROLIMUS [Suspect]
     Active Substance: TACROLIMUS
     Indication: Acute myeloid leukaemia
  2. TACROLIMUS [Suspect]
     Active Substance: TACROLIMUS
     Indication: Antifungal prophylaxis
  3. MYCOPHENOLATE MOFETIL [Suspect]
     Active Substance: MYCOPHENOLATE MOFETIL
     Indication: Acute myeloid leukaemia
  4. MYCOPHENOLATE MOFETIL [Suspect]
     Active Substance: MYCOPHENOLATE MOFETIL
     Indication: Antifungal prophylaxis
  5. DEXAMETHASONE [Suspect]
     Active Substance: DEXAMETHASONE
     Indication: Acute myeloid leukaemia
  6. FLUDARABINE [Suspect]
     Active Substance: FLUDARABINE PHOSPHATE
     Indication: Acute myeloid leukaemia
     Dosage: 30 MILLIGRAM/SQ. METER, QD, (-6 DO -2)
  7. METHOTREXATE [Suspect]
     Active Substance: METHOTREXATE
     Indication: Acute myeloid leukaemia
  8. SORAFENIB [Suspect]
     Active Substance: SORAFENIB
     Indication: Acute myeloid leukaemia
     Dosage: 800 MILLIGRAM, QD, (400 MG, BID)
  9. SORAFENIB [Suspect]
     Active Substance: SORAFENIB
     Indication: Antifungal prophylaxis
  10. CYCLOSPORINE [Suspect]
     Active Substance: CYCLOSPORINE
     Indication: Acute myeloid leukaemia
  11. DAUNORUBICIN [Suspect]
     Active Substance: DAUNORUBICIN
     Indication: Acute myeloid leukaemia
  12. CYTARABINE [Suspect]
     Active Substance: CYTARABINE
     Indication: Acute myeloid leukaemia
     Dosage: 200 MILLIGRAM/SQ. METER,  Q24H (DAYS 1-7)
  13. BUSULFAN [Suspect]
     Active Substance: BUSULFAN
     Indication: Prophylaxis
     Dosage: 3.2 MILLIGRAM/SQ. METER, QD, (-6 DO -3)
  14. BUSULFAN [Suspect]
     Active Substance: BUSULFAN
     Indication: Acute myeloid leukaemia
  15. CYCLOPHOSPHAMIDE [Suspect]
     Active Substance: CYCLOPHOSPHAMIDE
     Indication: Acute myeloid leukaemia
  16. IDARUBICIN [Suspect]
     Active Substance: IDARUBICIN
     Indication: Acute myeloid leukaemia
  17. MIDOSTAURIN [Suspect]
     Active Substance: MIDOSTAURIN
     Indication: Acute myeloid leukaemia
     Dosage: 50 MILLIGRAM, Q12H (FROM DAY 8 TO 21)
     Dates: start: 202004
  18. POSACONAZOLE [Concomitant]
     Active Substance: POSACONAZOLE
     Indication: Antifungal prophylaxis

REACTIONS (14)
  - Pancytopenia [Unknown]
  - Graft versus host disease [Unknown]
  - Neutropenia [Unknown]
  - Cytomegalovirus infection reactivation [Unknown]
  - Febrile neutropenia [Unknown]
  - Device related infection [Unknown]
  - Acute myeloid leukaemia recurrent [Unknown]
  - Anaemia [Unknown]
  - Thrombocytopenia [Unknown]
  - Urinary tract infection [Unknown]
  - Headache [Unknown]
  - Diarrhoea [Unknown]
  - Pyrexia [Unknown]
  - Rash maculo-papular [Unknown]

NARRATIVE: CASE EVENT DATE: 20201201
